FAERS Safety Report 20493727 (Version 3)
Quarter: 2022Q2

REPORT INFORMATION
  Report Type: Other
  Country: GB (occurrence: GB)
  Receive Date: 20220221
  Receipt Date: 20220412
  Transmission Date: 20220721
  Serious: Yes (Other)
  Sender: FDA-Public Use
  Company Number: GB-CELLTRION INC.-2022GB001811

PATIENT

DRUGS (3)
  1. INFLIXIMAB [Suspect]
     Active Substance: INFLIXIMAB
     Indication: Product used for unknown indication
     Dosage: PHARMACEUTICAL DOSE FORM: 356
     Dates: start: 20220208
  2. HYDROXOCOBALAMIN [Concomitant]
     Active Substance: HYDROXOCOBALAMIN
     Dosage: IM INJECTION AS DIRECTED; PHARMACEUTICAL DOSE FORM: 120
     Route: 030
     Dates: start: 20211221, end: 20211224
  3. OMEPRAZOLE [Concomitant]
     Active Substance: OMEPRAZOLE
     Dosage: 1X/DAY; TAKE ONE CAPSULE ONCE A DAY; PHARMACEUTICAL DOSE FORM: 5
     Dates: start: 20220208

REACTIONS (1)
  - Anaphylactic reaction [Recovered/Resolved]

NARRATIVE: CASE EVENT DATE: 20220208
